FAERS Safety Report 18027463 (Version 4)
Quarter: 2020Q4

REPORT INFORMATION
  Report Type: Report from Study
  Country: None (occurrence: US)
  Receive Date: 20200716
  Receipt Date: 20201113
  Transmission Date: 20210113
  Serious: Yes (Hospitalization, Other)
  Sender: FDA-Public Use
  Company Number: US-ABBVIE-20K-163-3482072-00

PATIENT
  Age: 82 Year
  Sex: Female

DRUGS (3)
  1. DECITABINE. [Concomitant]
     Active Substance: DECITABINE
     Indication: ACUTE MYELOID LEUKAEMIA
  2. VENCLEXTA [Suspect]
     Active Substance: VENETOCLAX
     Indication: ACUTE MYELOID LEUKAEMIA
     Route: 048
     Dates: start: 20200127, end: 202005
  3. DECITABINE. [Concomitant]
     Active Substance: DECITABINE
     Indication: ACUTE LYMPHOCYTIC LEUKAEMIA

REACTIONS (14)
  - Gastrooesophageal reflux disease [Recovering/Resolving]
  - Renal failure [Recovering/Resolving]
  - Faecaloma [Recovering/Resolving]
  - Infection [Recovered/Resolved]
  - Cyst [Unknown]
  - Pyrexia [Unknown]
  - Hypophagia [Recovering/Resolving]
  - Vascular device infection [Recovering/Resolving]
  - Sepsis [Recovering/Resolving]
  - Vomiting [Recovered/Resolved]
  - Blood potassium decreased [Unknown]
  - Dehydration [Recovering/Resolving]
  - Hypotension [Recovering/Resolving]
  - Decreased appetite [Recovered/Resolved]

NARRATIVE: CASE EVENT DATE: 2020
